FAERS Safety Report 6567499-6 (Version None)
Quarter: 2010Q1

REPORT INFORMATION
  Report Type: 
  Country: None (occurrence: None)
  Receive Date: 20100202
  Receipt Date: 20100120
  Transmission Date: 20100710
  Serious: No
  Sender: FDA-Public Use
  Company Number: US-JNJFOC-20100108124

PATIENT
  Sex: Male
  Weight: 90.72 kg

DRUGS (3)
  1. PALIPERIDONE PALMITATE [Suspect]
     Indication: SCHIZOPHRENIA, PARANOID TYPE
     Route: 030
  2. PALIPERIDONE PALMITATE [Suspect]
     Route: 030
  3. TRAZODONE [Concomitant]

REACTIONS (1)
  - CONTUSION [None]
